FAERS Safety Report 11005763 (Version 1)
Quarter: 2015Q2

REPORT INFORMATION
  Report Type: Spontaneous
  Country: US (occurrence: US)
  Receive Date: 20150409
  Receipt Date: 20150409
  Transmission Date: 20150821
  Serious: Yes (Hospitalization)
  Sender: FDA-Public Use
  Company Number: US-TEVA-552875USA

PATIENT
  Sex: Female

DRUGS (4)
  1. COPAXONE [Suspect]
     Active Substance: GLATIRAMER ACETATE
     Indication: MULTIPLE SCLEROSIS
     Dosage: UNKNOWN DOSE STRENGTH
     Dates: start: 2006
  2. AVONEX [Concomitant]
     Active Substance: INTERFERON BETA-1A
     Dates: start: 20111121, end: 20120101
  3. ADVIL [Concomitant]
     Active Substance: IBUPROFEN
  4. TYSABRI [Concomitant]
     Active Substance: NATALIZUMAB
     Dates: start: 20090914, end: 20111027

REACTIONS (7)
  - Arthropathy [Unknown]
  - Urticaria [Unknown]
  - Chest discomfort [Unknown]
  - Heart rate increased [Unknown]
  - Dyspnoea [Unknown]
  - Immediate post-injection reaction [Unknown]
  - Tremor [Unknown]

NARRATIVE: CASE EVENT DATE: 2006
